FAERS Safety Report 10244774 (Version 2)
Quarter: 2014Q3

REPORT INFORMATION
  Report Type: Report from Study
  Country: BR (occurrence: BR)
  Receive Date: 20140618
  Receipt Date: 20140821
  Transmission Date: 20150326
  Serious: Yes (Hospitalization, Other)
  Sender: FDA-Public Use
  Company Number: PHHY2014BR074402

PATIENT
  Sex: Female
  Weight: 68 kg

DRUGS (5)
  1. DIOVAN [Suspect]
     Active Substance: VALSARTAN
     Indication: HYPERTENSION
     Dosage: 1 DF DAILY
     Route: 048
     Dates: end: 20140609
  2. CLOMENAC [Concomitant]
     Indication: SENILE DEMENTIA
     Dosage: 2 DF DAILY
     Route: 048
  3. ATENOLOL. [Concomitant]
     Active Substance: ATENOLOL
     Indication: HEART RATE ABNORMAL
     Dosage: 1 DF DAILY
     Route: 048
  4. ZYPREXA [Concomitant]
     Active Substance: OLANZAPINE
     Indication: SENILE DEMENTIA
     Dosage: 1 DF DAILY
     Route: 048
     Dates: start: 201311
  5. ALDACTONE [Concomitant]
     Active Substance: SPIRONOLACTONE
     Dosage: 1 DF DAILY
     Route: 048

REACTIONS (1)
  - Pulmonary embolism [Recovered/Resolved]
